FAERS Safety Report 8578822-5 (Version None)
Quarter: 2012Q3

REPORT INFORMATION
  Report Type: 
  Country: None (occurrence: None)
  Receive Date: 20120808
  Receipt Date: 20120730
  Transmission Date: 20120928
  Serious: Yes (Hospitalization, Other)
  Sender: FDA-Public Use
  Company Number: US-JNJFOC-20120801889

PATIENT
  Sex: Female
  Weight: 48.08 kg

DRUGS (6)
  1. TOPAMAX [Suspect]
     Dosage: CUT 200 MG TABLETS
     Route: 048
     Dates: start: 20120601
  2. TOPIRAMATE [Suspect]
     Indication: MIGRAINE PROPHYLAXIS
     Route: 065
  3. TOPAMAX [Suspect]
     Indication: MIGRAINE PROPHYLAXIS
     Route: 048
  4. FIORICET [Concomitant]
     Indication: MIGRAINE
     Dosage: AS NEEDED
     Route: 048
     Dates: start: 20040101
  5. TOPAMAX [Suspect]
     Route: 048
     Dates: start: 20120201
  6. TOPAMAX [Suspect]
     Route: 048
     Dates: start: 20040101, end: 20120201

REACTIONS (10)
  - PULMONARY MASS [None]
  - LUNG ABSCESS [None]
  - CONVULSION [None]
  - WRONG TECHNIQUE IN DRUG USAGE PROCESS [None]
  - FALL [None]
  - FOOT FRACTURE [None]
  - STRESS [None]
  - MIGRAINE [None]
  - BREAST CANCER [None]
  - VISUAL IMPAIRMENT [None]
